FAERS Safety Report 9110141 (Version 3)
Quarter: 2013Q2

REPORT INFORMATION
  Report Type: Spontaneous
  Country: FI (occurrence: FI)
  Receive Date: 20130222
  Receipt Date: 20130514
  Transmission Date: 20140414
  Serious: Yes (Other)
  Sender: FDA-Public Use
  Company Number: FI-ROCHE-1193660

PATIENT
  Age: 56 Year
  Sex: 0

DRUGS (4)
  1. AVASTIN [Suspect]
     Indication: OVARIAN CANCER
     Route: 042
     Dates: start: 20120625, end: 20121029
  2. NORVASC [Concomitant]
     Indication: HYPERTENSION
     Route: 048
     Dates: start: 2012
  3. FEMAR [Concomitant]
     Indication: BREAST CANCER
     Route: 048
     Dates: start: 201201
  4. KALCIPOS-D [Concomitant]
     Indication: OSTEOPOROSIS PROPHYLAXIS
     Route: 048
     Dates: start: 201201

REACTIONS (3)
  - Wrist fracture [Unknown]
  - Humerus fracture [Recovering/Resolving]
  - Fall [Unknown]
